FAERS Safety Report 6070655-7 (Version None)
Quarter: 2009Q1

REPORT INFORMATION
  Report Type: 
  Country: None (occurrence: None)
  Receive Date: 20090209
  Receipt Date: 20090128
  Transmission Date: 20090719
  Serious: Yes (Hospitalization)
  Sender: FDA-Public Use
  Company Number: FR-PFIZER INC-2009161545

PATIENT

DRUGS (5)
  1. SOLU-MEDROL [Suspect]
     Indication: BRONCHITIS
     Dosage: 20MG/ML
     Route: 055
     Dates: start: 20090101, end: 20090101
  2. CELECTOL [Concomitant]
     Dosage: UNK
  3. REPAGLINIDE [Concomitant]
     Dosage: UNK
  4. ZANIDIP [Concomitant]
     Dosage: UNK
  5. LANTUS [Concomitant]
     Dosage: UNK

REACTIONS (2)
  - BLOOD GLUCOSE [None]
  - INCORRECT ROUTE OF DRUG ADMINISTRATION [None]
